FAERS Safety Report 13556932 (Version 1)
Quarter: 2017Q2

REPORT INFORMATION
  Report Type: Spontaneous
  Country: US (occurrence: US)
  Receive Date: 20170517
  Receipt Date: 20170517
  Transmission Date: 20170830
  Serious: Yes (Other)
  Sender: FDA-Public Use
  Company Number: None

PATIENT
  Age: 61 Year
  Sex: Female
  Weight: 94.5 kg

DRUGS (9)
  1. AFINITOR [Suspect]
     Active Substance: EVEROLIMUS
     Indication: BREAST CANCER METASTATIC
     Dosage: ?          QUANTITY:1 TABLET(S);?
     Dates: start: 20170208
  2. VITAMIN B12 [Concomitant]
     Active Substance: CYANOCOBALAMIN
  3. D [Concomitant]
  4. COD LIVER OIL [Concomitant]
     Active Substance: COD LIVER OIL
  5. C [Concomitant]
  6. SELENIUM [Concomitant]
     Active Substance: SELENIUM
  7. LORAZEPAM. [Concomitant]
     Active Substance: LORAZEPAM
  8. EXEMESTANE. [Concomitant]
     Active Substance: EXEMESTANE
  9. DEXAMETHASONE. [Concomitant]
     Active Substance: DEXAMETHASONE

REACTIONS (2)
  - Visual field defect [None]
  - Visual impairment [None]

NARRATIVE: CASE EVENT DATE: 20170415
